FAERS Safety Report 5159789-9 (Version None)
Quarter: 2006Q4

REPORT INFORMATION
  Report Type: 
  Country: None (occurrence: None)
  Receive Date: 20061129
  Receipt Date: 20051212
  Transmission Date: 20070319
  Serious: Yes (Hospitalization)
  Sender: FDA-Public Use
  Company Number: US-GLAXOSMITHKLINE-A0585535A

PATIENT
  Age: 54 Year
  Sex: Female

DRUGS (2)
  1. WELLBUTRIN [Suspect]
     Indication: DEPRESSION
     Dosage: 150MG TWICE PER DAY
     Route: 048
  2. TOFRANIL [Concomitant]

REACTIONS (4)
  - AGITATION [None]
  - DYSARTHRIA [None]
  - OVERDOSE [None]
  - SOMNOLENCE [None]
